FAERS Safety Report 9294371 (Version 1)
Quarter: 2013Q1

REPORT INFORMATION
  Report Type: Spontaneous
  Country: US (occurrence: None)
  Receive Date: 20121227
  Receipt Date: 20121227
  Transmission Date: 20140127
  Serious: Yes (Other)
  Sender: FDA-Public Use
  Company Number: PHEH2011US011501

PATIENT
  Age: 64 Year
  Sex: Male
  Weight: 76.2 kg

DRUGS (5)
  1. EXJADE [Suspect]
     Indication: IRON OVERLOAD
     Route: 048
     Dates: start: 20090910
  2. AVIDART (DUTASTERIDE) [Concomitant]
  3. COUMADIN (WARFARIN SODIUM) [Concomitant]
  4. SIMVASTATIN (SIMVASTATIN) [Concomitant]
  5. TRACLEER (BOSENTAN) [Concomitant]

REACTIONS (3)
  - Renal failure [None]
  - Diarrhoea [None]
  - Blood urea increased [None]
